FAERS Safety Report 20355929 (Version 1)
Quarter: 2022Q1

REPORT INFORMATION
  Report Type: Spontaneous
  Country: US (occurrence: US)
  Receive Date: 20220120
  Receipt Date: 20220120
  Transmission Date: 20220423
  Serious: Yes (Other)
  Sender: FDA-Public Use
  Company Number: US-PFIZER INC-202200047259

PATIENT
  Age: 6 Year
  Sex: Male

DRUGS (2)
  1. CYTARABINE [Suspect]
     Active Substance: CYTARABINE
     Indication: Acute myeloid leukaemia
     Dosage: 1000 MG/M2, CYCLIC (THIRD CYCLE; EVERY 12 HOURS)
  2. ETOPOSIDE [Suspect]
     Active Substance: ETOPOSIDE
     Indication: Acute myeloid leukaemia
     Dosage: 150 MG/M2, CYCLIC (THIRD CYCLE; DAILY FOR DAYS 1-5)

REACTIONS (1)
  - Recall phenomenon [Recovered/Resolved]
